FAERS Safety Report 5025408-5 (Version None)
Quarter: 2006Q2

REPORT INFORMATION
  Report Type: 
  Country: None (occurrence: None)
  Receive Date: 20060608
  Receipt Date: 20060530
  Transmission Date: 20061013
  Serious: Yes (Death, Life-Threatening, Other)
  Sender: FDA-Public Use
  Company Number: 2006-04-1164

PATIENT
  Age: 73 Year
  Sex: Female
  Weight: 71.6683 kg

DRUGS (1)
  1. INTEGRILIN [Suspect]
     Indication: PERCUTANEOUS CORONARY INTERVENTION
     Dosage: SEE IMAGE
     Route: 042

REACTIONS (4)
  - PERITONEAL HAEMORRHAGE [None]
  - POST PROCEDURAL HAEMORRHAGE [None]
  - VASCULAR CALCIFICATION [None]
  - VESSEL PUNCTURE SITE HAEMATOMA [None]
